FAERS Safety Report 8304027-9 (Version None)
Quarter: 2012Q2

REPORT INFORMATION
  Report Type: 
  Country: None (occurrence: None)
  Receive Date: 20120423
  Receipt Date: 20120412
  Transmission Date: 20120825
  Serious: Yes (Other)
  Sender: FDA-Public Use
  Company Number: BR-JNJFOC-20120209028

PATIENT
  Sex: Female
  Weight: 77.5 kg

DRUGS (7)
  1. REMICADE [Suspect]
     Route: 042
     Dates: start: 20111213
  2. REMICADE [Suspect]
     Dosage: ALSO REPORTED AS 400 MG
     Route: 042
     Dates: start: 20120214
  3. REMICADE [Suspect]
     Indication: CROHN'S DISEASE
     Route: 042
     Dates: start: 20120410
  4. AZATHIOPRINE [Concomitant]
     Dosage: 3.5 DOSAGE
     Route: 048
  5. REMICADE [Suspect]
     Route: 042
     Dates: start: 20100701
  6. FLUOXETINE [Concomitant]
     Route: 048
  7. MEBEVERINE [Concomitant]
     Route: 048

REACTIONS (8)
  - RASH [None]
  - MALAISE [None]
  - INFUSION RELATED REACTION [None]
  - DYSPNOEA [None]
  - HEAD DISCOMFORT [None]
  - NAUSEA [None]
  - THROAT TIGHTNESS [None]
  - NASOPHARYNGITIS [None]
